FAERS Safety Report 23187225 (Version 1)
Quarter: 2023Q4

REPORT INFORMATION
  Report Type: Spontaneous
  Country: CH (occurrence: CH)
  Receive Date: 20231115
  Receipt Date: 20231115
  Transmission Date: 20240109
  Serious: Yes (Other)
  Sender: FDA-Public Use
  Company Number: CH-SAMSUNG BIOEPIS-SB-2023-30045

PATIENT
  Age: 60 Year
  Sex: Male

DRUGS (3)
  1. ADALIMUMAB [Suspect]
     Active Substance: ADALIMUMAB\ISOPROPYL ALCOHOL
     Indication: Polyarthritis
     Dosage: UNKNOWN
     Route: 065
  2. ADALIMUMAB [Suspect]
     Active Substance: ADALIMUMAB\ISOPROPYL ALCOHOL
     Indication: Acute febrile neutrophilic dermatosis
  3. ANAKINRA [Suspect]
     Active Substance: ANAKINRA
     Indication: Product used for unknown indication
     Dosage: UNKNOWN
     Route: 058

REACTIONS (8)
  - VEXAS syndrome [Unknown]
  - Lymphadenopathy [Unknown]
  - Injection site reaction [Unknown]
  - Pathergy reaction [Unknown]
  - Type IV hypersensitivity reaction [Unknown]
  - Therapeutic product effect incomplete [Unknown]
  - Drug ineffective for unapproved indication [Unknown]
  - Off label use [Unknown]
